FAERS Safety Report 5754112-0 (Version None)
Quarter: 2008Q2

REPORT INFORMATION
  Report Type: 
  Country: None (occurrence: None)
  Receive Date: 20080530
  Receipt Date: 20080522
  Transmission Date: 20081010
  Serious: Yes (Hospitalization)
  Sender: FDA-Public Use
  Company Number: GB-ROCHE-566213

PATIENT
  Sex: Female
  Weight: 117 kg

DRUGS (5)
  1. ORLISTAT [Suspect]
     Indication: OBESITY
     Route: 048
     Dates: start: 20071025, end: 20080101
  2. TRAMADOL HCL [Concomitant]
     Indication: ANALGESIA
     Route: 048
  3. CYCLIZINE [Concomitant]
     Indication: NAUSEA
     Route: 048
  4. PREDNISOLONE [Concomitant]
     Indication: STEROID THERAPY
     Route: 048
  5. MONTELUKAST SODIUM [Concomitant]
     Route: 048

REACTIONS (1)
  - ABSCESS LIMB [None]
